FAERS Safety Report 15533658 (Version 1)
Quarter: 2018Q4

REPORT INFORMATION
  Report Type: Spontaneous
  Country: LK (occurrence: LK)
  Receive Date: 20181019
  Receipt Date: 20181019
  Transmission Date: 20190205
  Serious: Yes (Other)
  Sender: FDA-Public Use
  Company Number: LK-PFIZER INC-2018425293

PATIENT
  Age: 56 Year
  Sex: Female

DRUGS (13)
  1. DOXYCYCLINE. [Suspect]
     Active Substance: DOXYCYCLINE
     Indication: BURKHOLDERIA PSEUDOMALLEI INFECTION
     Dosage: 100 MG, 2X/DAY
     Route: 048
  2. DOXYCYCLINE. [Suspect]
     Active Substance: DOXYCYCLINE
     Indication: SACROILIITIS
  3. COTRIMOXAZOLE [Concomitant]
     Active Substance: SULFAMETHOXAZOLE\TRIMETHOPRIM
     Indication: SACROILIITIS
     Dosage: 4 DF, 2X/DAY, (EACH TABLET = 400 MG OF SULFAMETHOXALE AND 80 MG OF TRIMETHOPRIM)
     Route: 048
  4. DOXYCYCLINE. [Suspect]
     Active Substance: DOXYCYCLINE
     Indication: BONE MARROW FAILURE
  5. COTRIMOXAZOLE [Concomitant]
     Active Substance: SULFAMETHOXAZOLE\TRIMETHOPRIM
     Indication: BURKHOLDERIA PSEUDOMALLEI INFECTION
     Dosage: 3 DF, 2X/DAY, (EACH TABLET = 400 MG OF SULFAMETHOXALE AND 80 MG OF TRIMETHOPRIM)
     Route: 048
  6. CEFTAZIDIME. [Concomitant]
     Active Substance: CEFTAZIDIME
     Indication: BURKHOLDERIA PSEUDOMALLEI INFECTION
     Dosage: 2 G, 4X/DAY
     Route: 042
  7. COTRIMOXAZOLE [Concomitant]
     Active Substance: SULFAMETHOXAZOLE\TRIMETHOPRIM
     Dosage: 4 DF, 2X/DAY, (EACH TABLET = 400 MG OF SULFAMETHOXALE AND 80 MG OF TRIMETHOPRIM)
     Route: 048
  8. MEROPENEM. [Suspect]
     Active Substance: MEROPENEM
     Indication: BURKHOLDERIA PSEUDOMALLEI INFECTION
     Dosage: 2 G, 3X/DAY
     Route: 042
  9. MEROPENEM. [Suspect]
     Active Substance: MEROPENEM
     Indication: MUSCLE ABSCESS
  10. DOXYCYCLINE. [Suspect]
     Active Substance: DOXYCYCLINE
     Indication: MUSCLE ABSCESS
  11. CEFTAZIDIME. [Concomitant]
     Active Substance: CEFTAZIDIME
     Indication: BURKHOLDERIA PSEUDOMALLEI INFECTION
  12. MEROPENEM. [Suspect]
     Active Substance: MEROPENEM
     Indication: SACROILIITIS
  13. COTRIMOXAZOLE [Concomitant]
     Active Substance: SULFAMETHOXAZOLE\TRIMETHOPRIM
     Indication: MUSCLE ABSCESS
     Dosage: 3 DF, 2X/DAY, (EACH TABLET = 400 MG OF SULFAMETHOXALE AND 80 MG OF TRIMETHOPRIM)
     Route: 048

REACTIONS (2)
  - Hyponatraemia [Recovered/Resolved]
  - Inappropriate antidiuretic hormone secretion [Recovered/Resolved]
